FAERS Safety Report 23296226 (Version 1)
Quarter: 2023Q4

REPORT INFORMATION
  Report Type: Spontaneous
  Country: US (occurrence: None)
  Receive Date: 20231213
  Receipt Date: 20231213
  Transmission Date: 20240109
  Serious: Yes (Disabling)
  Sender: FDA-Public Use
  Company Number: None

PATIENT
  Age: 69 Year
  Sex: Female
  Weight: 60.78 kg

DRUGS (7)
  1. HYDROXYCHLOROQUINE SULFATE [Suspect]
     Active Substance: HYDROXYCHLOROQUINE SULFATE
     Indication: Rheumatoid arthritis
     Dosage: OTHER QUANTITY : TABLETS;?FREQUENCY : DAILY;?
     Route: 048
     Dates: start: 1996, end: 20190813
  2. HUMIRA (ADALIMUBAB) [Concomitant]
  3. LEVOTHYROXINE [Concomitant]
     Active Substance: LEVOTHYROXINE
  4. COZAAR (LOSARTAN) [Concomitant]
  5. PREDNISOLONE ACETATE [Concomitant]
  6. CENTRUM SILVER DAILY [Concomitant]
  7. FISH OIL/VITA E [Concomitant]

REACTIONS (7)
  - Vision blurred [None]
  - Maculopathy [None]
  - Sjogren^s syndrome [None]
  - Drug ineffective [None]
  - Uveitis [None]
  - Therapy change [None]
  - Cataract [None]

NARRATIVE: CASE EVENT DATE: 20190813
